FAERS Safety Report 8376150-4 (Version None)
Quarter: 2012Q2

REPORT INFORMATION
  Report Type: 
  Country: None (occurrence: None)
  Receive Date: 20120522
  Receipt Date: 20120518
  Transmission Date: 20120825
  Serious: Yes (Life-Threatening, Hospitalization, Disabling)
  Sender: FDA-Public Use
  Company Number: PHHO2012PL007551

PATIENT
  Sex: Male
  Weight: 96 kg

DRUGS (11)
  1. ALISKIREN [Suspect]
     Dosage: UNK
     Route: 048
     Dates: start: 20120403
  2. INSULIN [Concomitant]
     Indication: TYPE 2 DIABETES MELLITUS
     Dosage: 20 - 20 - 24 IU
     Dates: start: 20100101
  3. ASPIRIN [Concomitant]
     Indication: CORONARY ARTERY DISEASE
     Dosage: 75 MG, QD
     Route: 048
     Dates: start: 20080101
  4. BISOPROLOL FUMARATE [Concomitant]
     Indication: CARDIAC FAILURE
     Dosage: 2.5 MG, QD
     Route: 048
     Dates: start: 20080101
  5. SIMVASTATIN [Concomitant]
     Indication: CORONARY ARTERY DISEASE
     Dosage: 20 MG, QD
     Route: 048
     Dates: start: 20090101
  6. FUROSEMIDE [Concomitant]
     Indication: CARDIAC FAILURE
     Dosage: 80 MG - 40 MG
     Route: 048
     Dates: start: 20090101
  7. ALISKIREN [Suspect]
     Indication: CARDIAC FAILURE
     Dosage: UNK
     Route: 048
     Dates: start: 20100211, end: 20120322
  8. ENALAPRIL MALEATE [Suspect]
     Dosage: UNK
     Route: 048
     Dates: start: 20120403
  9. OMEPRAZOLE [Concomitant]
     Indication: GASTRITIS EROSIVE
     Dosage: 20 MG, QD
     Route: 048
     Dates: start: 20100101
  10. HYDROCHLOROTHIAZIDE [Concomitant]
     Indication: CARDIAC FAILURE
     Dosage: 12.5 MG, QD
     Route: 048
     Dates: start: 20110101
  11. ENALAPRIL MALEATE [Suspect]
     Indication: CARDIAC FAILURE
     Dosage: UNK
     Route: 048
     Dates: start: 20100211, end: 20120322

REACTIONS (1)
  - CEREBROVASCULAR ACCIDENT [None]
